FAERS Safety Report 7984940-2 (Version None)
Quarter: 2011Q4

REPORT INFORMATION
  Report Type: 
  Country: None (occurrence: None)
  Receive Date: 20111216
  Receipt Date: 20111025
  Transmission Date: 20120403
  Serious: No
  Sender: FDA-Public Use
  Company Number: US-ALLERGAN-1114070US

PATIENT
  Sex: Female

DRUGS (2)
  1. LATISSE [Suspect]
     Dosage: UNK
     Dates: start: 20110101
  2. LATISSE [Suspect]
     Indication: GROWTH OF EYELASHES
     Dosage: UNK
     Dates: start: 20111001

REACTIONS (3)
  - TRICHORRHEXIS [None]
  - MADAROSIS [None]
  - DRUG INEFFECTIVE [None]
